FAERS Safety Report 7693390-8 (Version None)
Quarter: 2011Q3

REPORT INFORMATION
  Report Type: 
  Country: None (occurrence: None)
  Receive Date: 20110819
  Receipt Date: 20110805
  Transmission Date: 20111222
  Serious: Yes (Hospitalization)
  Sender: FDA-Public Use
  Company Number: US-CELGENEUS-163-AB007-11080808

PATIENT
  Sex: Female
  Weight: 116 kg

DRUGS (5)
  1. ABRAXANE [Suspect]
     Indication: BREAST CANCER
     Route: 041
     Dates: start: 20110506
  2. ABRAXANE [Suspect]
     Dosage: 220 MILLIGRAM
     Route: 041
     Dates: start: 20110722, end: 20110722
  3. CARBOPLATIN [Suspect]
     Dosage: 468 MILLIGRAM
     Route: 041
     Dates: start: 20110722
  4. CARBOPLATIN [Suspect]
     Indication: BREAST CANCER
     Route: 041
     Dates: start: 20110506
  5. PROTONIX [Concomitant]
     Route: 065

REACTIONS (8)
  - GASTRITIS [None]
  - DEHYDRATION [None]
  - WEIGHT DECREASED [None]
  - ANAEMIA [None]
  - FATIGUE [None]
  - DYSGEUSIA [None]
  - BLOOD CREATININE INCREASED [None]
  - DECREASED APPETITE [None]
